FAERS Safety Report 15456415 (Version 2)
Quarter: 2018Q4

REPORT INFORMATION
  Report Type: Spontaneous
  Country: US (occurrence: US)
  Receive Date: 20181002
  Receipt Date: 20181018
  Transmission Date: 20190204
  Serious: Yes (Other)
  Sender: FDA-Public Use
  Company Number: US-PFIZER INC-2018396753

PATIENT
  Age: 75 Year
  Sex: Female
  Weight: 63 kg

DRUGS (7)
  1. ASPIRIN (E.C.) [Suspect]
     Active Substance: ASPIRIN
     Indication: TRANSIENT ISCHAEMIC ATTACK
     Dosage: 81 MG, QD
     Dates: start: 2018
  2. ELIQUIS [Suspect]
     Active Substance: APIXABAN
     Indication: CEREBROVASCULAR ACCIDENT PROPHYLAXIS
     Dosage: 5 MG, BID
     Route: 048
     Dates: start: 2018
  3. SUTENT [Suspect]
     Active Substance: SUNITINIB MALATE
     Indication: GASTROINTESTINAL STROMAL CANCER
     Dosage: UNK
     Route: 065
  4. LISINOPRIL. [Concomitant]
     Active Substance: LISINOPRIL
     Dosage: UNK (SMALL DOSE)
     Route: 065
  5. VITAMINS [Concomitant]
     Active Substance: VITAMINS
     Dosage: UNK
     Route: 065
  6. COREG [Concomitant]
     Active Substance: CARVEDILOL
     Dosage: UNK UNK, BID
     Route: 065
  7. ATORVASTATIN [Concomitant]
     Active Substance: ATORVASTATIN
     Dosage: UNK
     Route: 065

REACTIONS (8)
  - Gastrointestinal stromal cancer [Unknown]
  - Cerebrovascular disorder [Unknown]
  - Tooth disorder [Unknown]
  - Transient ischaemic attack [Recovered/Resolved]
  - Cardiac disorder [Unknown]
  - Drug resistance [Unknown]
  - Rhinorrhoea [Unknown]
  - Condition aggravated [Unknown]

NARRATIVE: CASE EVENT DATE: 2018
